FAERS Safety Report 19130281 (Version 6)
Quarter: 2021Q2

REPORT INFORMATION
  Report Type: Report from Study
  Country: IT (occurrence: IT)
  Receive Date: 20210413
  Receipt Date: 20210628
  Transmission Date: 20210717
  Serious: Yes (Life-Threatening, Hospitalization)
  Sender: FDA-Public Use
  Company Number: IT-ROCHE-2799470

PATIENT
  Age: 72 Year
  Sex: Male
  Weight: 63 kg

DRUGS (37)
  1. CLORFENAMINA [Concomitant]
     Active Substance: CHLORPHENIRAMINE MALEATE
     Route: 042
     Dates: start: 20210323, end: 20210323
  2. CLORFENAMINA [Concomitant]
     Active Substance: CHLORPHENIRAMINE MALEATE
     Route: 042
     Dates: start: 20210316, end: 20210316
  3. PARACETAMOL [Concomitant]
     Active Substance: ACETAMINOPHEN
     Indication: CYTOKINE RELEASE SYNDROME
     Dates: start: 20210309, end: 20210310
  4. OXYGEN. [Concomitant]
     Active Substance: OXYGEN
     Indication: HYPOXIA
     Dosage: 4 LT/MIN
     Dates: start: 20210309, end: 20210312
  5. DEXAMETHASONE. [Concomitant]
     Active Substance: DEXAMETHASONE
     Route: 042
     Dates: start: 20210303, end: 20210303
  6. ACYCLOVIR. [Concomitant]
     Active Substance: ACYCLOVIR
     Dates: start: 202005
  7. OXATOMIDE [Concomitant]
     Active Substance: OXATOMIDE
     Indication: RASH
     Dates: start: 20210320, end: 20210320
  8. PARACETAMOL [Concomitant]
     Active Substance: ACETAMINOPHEN
     Dates: start: 20210327, end: 20210327
  9. LEVOFLOXACINE [Concomitant]
     Active Substance: LEVOFLOXACIN
     Indication: CYTOKINE RELEASE SYNDROME
     Dates: start: 20210310, end: 20210318
  10. DEXAMETHASONE. [Concomitant]
     Active Substance: DEXAMETHASONE
     Route: 042
     Dates: start: 20210316, end: 20210316
  11. DEXAMETHASONE. [Concomitant]
     Active Substance: DEXAMETHASONE
     Route: 042
     Dates: start: 20210323, end: 20210323
  12. DEXAMETHASONE. [Concomitant]
     Active Substance: DEXAMETHASONE
     Route: 042
     Dates: start: 20210309, end: 20210309
  13. BACTRIM [Concomitant]
     Active Substance: SULFAMETHOXAZOLE\TRIMETHOPRIM
     Dates: start: 20210303
  14. OBINUTUZUMAB. [Suspect]
     Active Substance: OBINUTUZUMAB
     Indication: B-CELL LYMPHOMA REFRACTORY
     Dosage: ON 03/MAR/2021 AT 11:30 AM, HE RECEIVED MOST RECENT DOSE OF STUDY DRUG 1000 MG PRIOR TO AE + SAE AND
     Route: 042
     Dates: start: 20210303
  15. PARACETAMOL [Concomitant]
     Active Substance: ACETAMINOPHEN
     Route: 048
     Dates: start: 20210303, end: 20210303
  16. VALCYTE [Concomitant]
     Active Substance: VALGANCICLOVIR HYDROCHLORIDE
     Indication: CYTOMEGALOVIRUS INFECTION REACTIVATION
     Dates: start: 20210315, end: 20210322
  17. OXYGEN. [Concomitant]
     Active Substance: OXYGEN
     Indication: TUMOUR FLARE
  18. CLORFENAMINA [Concomitant]
     Active Substance: CHLORPHENIRAMINE MALEATE
     Route: 042
     Dates: start: 20210309, end: 20210309
  19. CLORFENAMINA [Concomitant]
     Active Substance: CHLORPHENIRAMINE MALEATE
     Dates: start: 20210327, end: 20210327
  20. CETIRIZINE [Concomitant]
     Active Substance: CETIRIZINE HYDROCHLORIDE
     Indication: RASH
     Dates: start: 20210327, end: 20210331
  21. RO7082859 (CD20/C3 T?CELL BISPECIFIC MAB) [Suspect]
     Active Substance: GLOFITAMAB
     Indication: B-CELL LYMPHOMA REFRACTORY
     Dosage: ON 16/MAR/2021 AT 11:05 AM, HE RECEIVED MOST RECENT DOSE OF STUDY DRUG 10 MG PRIOR TO AE AND WAS END
     Route: 042
     Dates: start: 20210309
  22. DIBASE [Concomitant]
     Active Substance: CHOLECALCIFEROL
     Dates: start: 202005
  23. POLATUZUMAB VEDOTIN. [Suspect]
     Active Substance: POLATUZUMAB VEDOTIN
     Indication: B-CELL LYMPHOMA REFRACTORY
     Dosage: ON 04/MAR/2021 AT 11:00 AM, HE RECEIVED MOST RECENT DOSE 121 MG IN 100 ML OF STUDY DRUG PRIOR TO AE
     Route: 042
     Dates: start: 20210304
  24. PARACETAMOL [Concomitant]
     Active Substance: ACETAMINOPHEN
     Indication: PYREXIA
     Route: 048
     Dates: start: 20210304, end: 20210304
  25. CLORFENAMINA [Concomitant]
     Active Substance: CHLORPHENIRAMINE MALEATE
     Dates: start: 20210329, end: 20210329
  26. LANSOPRAZOLE. [Concomitant]
     Active Substance: LANSOPRAZOLE
     Dates: start: 202005, end: 20210325
  27. LEVETIRACETAM. [Concomitant]
     Active Substance: LEVETIRACETAM
     Dates: start: 20210308, end: 20210331
  28. PARACETAMOL [Concomitant]
     Active Substance: ACETAMINOPHEN
     Route: 048
     Dates: start: 20210316, end: 20210316
  29. PARACETAMOL [Concomitant]
     Active Substance: ACETAMINOPHEN
     Route: 048
     Dates: start: 20210323, end: 20210323
  30. ALLOPURINOL. [Concomitant]
     Active Substance: ALLOPURINOL
     Indication: HYPERURICAEMIA
     Dates: start: 20210303, end: 20210326
  31. CLORFENAMINA [Concomitant]
     Active Substance: CHLORPHENIRAMINE MALEATE
     Indication: RASH
     Route: 042
     Dates: start: 20210303, end: 20210303
  32. CLORFENAMINA [Concomitant]
     Active Substance: CHLORPHENIRAMINE MALEATE
     Route: 042
     Dates: start: 20210304, end: 20210304
  33. G?CSF (GRANULOCYTE?COLONY STIMULATING FACTOR) (UNK INGREDIENTS) [Concomitant]
     Indication: PROPHYLAXIS
     Dates: start: 20210330, end: 20210401
  34. OMEPRAZOLE. [Concomitant]
     Active Substance: OMEPRAZOLE
     Dates: start: 20210326
  35. BECLOMETASONE [Concomitant]
     Active Substance: BECLOMETHASONE DIPROPIONATE
     Indication: BRONCHOSPASM
     Dates: start: 20210305, end: 20210305
  36. BECLOMETASONE [Concomitant]
     Active Substance: BECLOMETHASONE DIPROPIONATE
     Dates: start: 20210310, end: 20210314
  37. PARACETAMOL [Concomitant]
     Active Substance: ACETAMINOPHEN
     Route: 048
     Dates: start: 20210309, end: 20210309

REACTIONS (1)
  - Jejunal perforation [Not Recovered/Not Resolved]

NARRATIVE: CASE EVENT DATE: 20210320
